FAERS Safety Report 14380063 (Version 1)
Quarter: 2018Q1

REPORT INFORMATION
  Report Type: Report from Study
  Country: CA (occurrence: CA)
  Receive Date: 20180112
  Receipt Date: 20180112
  Transmission Date: 20180509
  Serious: Yes (Other)
  Sender: FDA-Public Use
  Company Number: CA-JNJFOC-20180113014

PATIENT
  Age: 72 Year
  Sex: Male
  Weight: 95.25 kg

DRUGS (1)
  1. STELARA [Suspect]
     Active Substance: USTEKINUMAB
     Indication: PSORIATIC ARTHROPATHY
     Dosage: STRENGTH = 90 MG
     Route: 058

REACTIONS (3)
  - Off label use [Unknown]
  - Incorrect dose administered [Unknown]
  - Diverticulitis [Recovering/Resolving]

NARRATIVE: CASE EVENT DATE: 20171215
